FAERS Safety Report 6232128-8 (Version None)
Quarter: 2009Q2

REPORT INFORMATION
  Report Type: 
  Country: None (occurrence: None)
  Receive Date: 20090617
  Receipt Date: 20090612
  Transmission Date: 20091009
  Serious: Yes (Death)
  Sender: FDA-Public Use
  Company Number: PL-ROCHE-636969

PATIENT
  Sex: Male
  Weight: 86 kg

DRUGS (2)
  1. XELODA [Suspect]
     Indication: COLORECTAL CANCER METASTATIC
     Route: 048
     Dates: start: 20090523, end: 20090602
  2. ACENOCUMAROLUM [Suspect]
     Indication: ATRIAL FIBRILLATION
     Dosage: FREQUENCY: 1 DAILY.
     Route: 048

REACTIONS (1)
  - LARGE INTESTINAL HAEMORRHAGE [None]
